FAERS Safety Report 4696907-0 (Version None)
Quarter: 2005Q2

REPORT INFORMATION
  Report Type: 
  Country: None (occurrence: None)
  Receive Date: 20050620
  Receipt Date: 20050411
  Transmission Date: 20051028
  Serious: No
  Sender: FDA-Public Use
  Company Number: US-YAMANOUCHI-YPA20050190

PATIENT
  Age: 94 Year
  Sex: Female

DRUGS (9)
  1. VESICARE [Suspect]
     Indication: INCONTINENCE
     Dosage: 5 MG QD PO
     Route: 048
     Dates: start: 20050405
  2. LIPITOR [Concomitant]
  3. ATENOLOL [Concomitant]
  4. ATACAND [Concomitant]
  5. REMERON [Concomitant]
  6. CLONAZEPAM [Concomitant]
  7. NEURONTIN [Concomitant]
  8. AVOCAX [Concomitant]
  9. ENABLEX [Concomitant]

REACTIONS (2)
  - DRUG INEFFECTIVE [None]
  - INCONTINENCE [None]
